FAERS Safety Report 23393000 (Version 1)
Quarter: 2024Q1

REPORT INFORMATION
  Report Type: Spontaneous
  Country: US (occurrence: US)
  Receive Date: 20240111
  Receipt Date: 20240111
  Transmission Date: 20240410
  Serious: No
  Sender: FDA-Public Use
  Company Number: US-NOVOPROD-1107019

PATIENT

DRUGS (1)
  1. RYBELSUS [Suspect]
     Active Substance: SEMAGLUTIDE
     Indication: Product used for unknown indication
     Dosage: UNK
     Route: 058
     Dates: start: 20230803

REACTIONS (7)
  - Renal pain [Unknown]
  - Paraesthesia oral [Unknown]
  - Paraesthesia oral [Unknown]
  - Hypoglycaemia [Unknown]
  - Eructation [Unknown]
  - Abdominal pain [Unknown]
  - Flatulence [Unknown]

NARRATIVE: CASE EVENT DATE: 20230805
